FAERS Safety Report 5487845-4 (Version None)
Quarter: 2007Q3

REPORT INFORMATION
  Report Type: 
  Country: None (occurrence: None)
  Receive Date: 20070925
  Receipt Date: 20070626
  Transmission Date: 20080115
  Serious: No
  Sender: FDA-Public Use
  Company Number: 2007US001298

PATIENT
  Age: 58 Year
  Sex: Female

DRUGS (2)
  1. VESICARE [Suspect]
     Indication: INCONTINENCE
     Dosage: 5 MG, UID/QD, ORAL
     Route: 048
     Dates: end: 20070601
  2. FOLIC ACID [Concomitant]

REACTIONS (1)
  - CONSTIPATION [None]
